FAERS Safety Report 16947261 (Version 1)
Quarter: 2019Q4

REPORT INFORMATION
  Report Type: Spontaneous
  Country: US (occurrence: US)
  Receive Date: 20191022
  Receipt Date: 20191022
  Transmission Date: 20200122
  Serious: No
  Sender: FDA-Public Use
  Company Number: US-BECTON DICKINSON-2019BDN00227

PATIENT
  Sex: Female

DRUGS (1)
  1. CHLORAPREP [Suspect]
     Active Substance: CHLORHEXIDINE GLUCONATE\ISOPROPYL ALCOHOL
     Indication: INFECTION PROPHYLAXIS
     Dosage: UNK
     Route: 061
     Dates: start: 20190315, end: 20190315

REACTIONS (4)
  - Application site inflammation [Unknown]
  - Maternal exposure during delivery [Recovered/Resolved]
  - Skin reaction [Unknown]
  - Application site irritation [Unknown]

NARRATIVE: CASE EVENT DATE: 20190315
